FAERS Safety Report 7457292-4 (Version None)
Quarter: 2011Q2

REPORT INFORMATION
  Report Type: 
  Country: None (occurrence: None)
  Receive Date: 20110502
  Receipt Date: 20110502
  Transmission Date: 20111010
  Serious: Yes (Disabling)
  Sender: FDA-Public Use
  Company Number: None

PATIENT
  Sex: Male
  Weight: 85.7298 kg

DRUGS (2)
  1. MICARDIS [Suspect]
     Indication: HYPERTENSION
     Dosage: 20 MG
     Dates: start: 20100218, end: 20100224
  2. MICARDIS [Suspect]
     Indication: HYPERTENSION
     Dosage: 80 MG ONE PER DAY
     Dates: start: 20080418, end: 20080419

REACTIONS (3)
  - PAIN IN EXTREMITY [None]
  - MUSCLE SPASMS [None]
  - OEDEMA PERIPHERAL [None]
